FAERS Safety Report 7166113-9 (Version None)
Quarter: 2010Q4

REPORT INFORMATION
  Report Type: 
  Country: None (occurrence: None)
  Receive Date: 20101216
  Receipt Date: 20101208
  Transmission Date: 20110411
  Serious: No
  Sender: FDA-Public Use
  Company Number: US-JNJFOC-20101204222

PATIENT
  Sex: Female
  Weight: 100.25 kg

DRUGS (6)
  1. SANDOZ FENTANYL TRANSDERMAL SYSTEM [Suspect]
     Indication: PAIN
     Route: 062
  2. NEXIUM [Concomitant]
     Indication: GASTRIC DISORDER
     Route: 048
  3. LYRICA [Concomitant]
     Indication: FIBROMYALGIA
     Route: 048
  4. BUSPIRONE HCL [Concomitant]
     Indication: NERVOUS SYSTEM DISORDER
     Route: 048
  5. CITALOPRAM HYDROBROMIDE [Concomitant]
     Indication: NERVOUS SYSTEM DISORDER
     Route: 048
  6. FEMARA [Concomitant]
     Indication: NEOPLASM MALIGNANT
     Route: 048

REACTIONS (3)
  - PAIN [None]
  - PRODUCT ADHESION ISSUE [None]
  - WRONG TECHNIQUE IN DRUG USAGE PROCESS [None]
